FAERS Safety Report 15637374 (Version 1)
Quarter: 2018Q4

REPORT INFORMATION
  Report Type: Spontaneous
  Country: US (occurrence: US)
  Receive Date: 20181120
  Receipt Date: 20181120
  Transmission Date: 20190205
  Serious: No
  Sender: FDA-Public Use
  Company Number: US-JNJFOC-20180514715

PATIENT
  Sex: Female

DRUGS (10)
  1. METOPROLOL. [Concomitant]
     Active Substance: METOPROLOL
  2. WARFARIN [Concomitant]
     Active Substance: WARFARIN
  3. HYDROCHLOROTHIAZIDE. [Concomitant]
     Active Substance: HYDROCHLOROTHIAZIDE
  4. TOCOPHEROL [Concomitant]
     Active Substance: TOCOPHEROL
  5. TYLENOL [Concomitant]
     Active Substance: ACETAMINOPHEN
  6. CALCIUM [Concomitant]
     Active Substance: CALCIUM
  7. BENADRYL [Concomitant]
     Active Substance: DIPHENHYDRAMINE HYDROCHLORIDE
  8. FISH OIL [Concomitant]
     Active Substance: FISH OIL
  9. IMBRUVICA [Suspect]
     Active Substance: IBRUTINIB
     Indication: CHRONIC LYMPHOCYTIC LEUKAEMIA
     Route: 048
     Dates: start: 2018
  10. IMBRUVICA [Suspect]
     Active Substance: IBRUTINIB
     Indication: CHRONIC LYMPHOCYTIC LEUKAEMIA
     Route: 048
     Dates: start: 20180426

REACTIONS (1)
  - Musculoskeletal disorder [Unknown]
